FAERS Safety Report 24763099 (Version 2)
Quarter: 2025Q1

REPORT INFORMATION
  Report Type: Spontaneous
  Country: US (occurrence: US)
  Receive Date: 20241222
  Receipt Date: 20250110
  Transmission Date: 20250409
  Serious: Yes (Other)
  Sender: BAYER HEALTHCARE PHARMACEUTICALS INC.
  Company Number: US-BAYER-2024A179760

PATIENT
  Age: 31 Year
  Sex: Female
  Weight: 168 kg

DRUGS (1)
  1. MIRENA [Suspect]
     Active Substance: LEVONORGESTREL
     Indication: Contraception
     Dosage: 20?G/DAY
     Route: 015
     Dates: start: 20241211

REACTIONS (3)
  - Uterine perforation [None]
  - Procedural pain [None]
  - Post procedural haemorrhage [None]

NARRATIVE: CASE EVENT DATE: 20241211
